FAERS Safety Report 15613745 (Version 1)
Quarter: 2018Q4

REPORT INFORMATION
  Report Type: Spontaneous
  Country: US (occurrence: US)
  Receive Date: 20181113
  Receipt Date: 20181113
  Transmission Date: 20190205
  Serious: No
  Sender: FDA-Public Use
  Company Number: US-BAUSCH-BL-2018-029369

PATIENT

DRUGS (2)
  1. RELISTOR [Suspect]
     Active Substance: METHYLNALTREXONE BROMIDE
     Indication: IRRITABLE BOWEL SYNDROME
     Route: 065
  2. RELISTOR [Suspect]
     Active Substance: METHYLNALTREXONE BROMIDE
     Indication: OFF LABEL USE

REACTIONS (3)
  - Drug effective for unapproved indication [Not Recovered/Not Resolved]
  - Drug effect variable [Not Recovered/Not Resolved]
  - Off label use [Not Recovered/Not Resolved]
